FAERS Safety Report 4709856-6 (Version None)
Quarter: 2005Q3

REPORT INFORMATION
  Report Type: 
  Country: None (occurrence: None)
  Receive Date: 20050708
  Receipt Date: 20050426
  Transmission Date: 20060218
  Serious: Yes (Hospitalization)
  Sender: FDA-Public Use
  Company Number: CH-JNJFOC-20050607095

PATIENT
  Sex: Male

DRUGS (7)
  1. REMINYL [Suspect]
     Route: 049
  2. REMINYL [Suspect]
     Route: 049
  3. REMINYL [Suspect]
     Indication: DEMENTIA
     Route: 049
  4. REMERON [Suspect]
     Route: 049
  5. REMERON [Suspect]
     Route: 049
  6. REMERON [Suspect]
     Indication: DRUG USE FOR UNKNOWN INDICATION
     Route: 049
  7. CONVULEX [Suspect]
     Indication: DRUG USE FOR UNKNOWN INDICATION
     Route: 049

REACTIONS (6)
  - AGGRESSION [None]
  - AGITATION [None]
  - DEEP VEIN THROMBOSIS [None]
  - HYPERSOMNIA [None]
  - MUSCULOSKELETAL DISORDER [None]
  - VISUAL DISTURBANCE [None]
